FAERS Safety Report 13927402 (Version 2)
Quarter: 2017Q3

REPORT INFORMATION
  Report Type: Spontaneous
  Country: US (occurrence: US)
  Receive Date: 20170831
  Receipt Date: 20170921
  Transmission Date: 20171127
  Serious: Yes (Hospitalization)
  Sender: FDA-Public Use
  Company Number: US-GLAXOSMITHKLINE-US2017134313

PATIENT
  Age: 72 Year
  Sex: Female
  Weight: 68.27 kg

DRUGS (1)
  1. ANORO ELLIPTA [Suspect]
     Active Substance: UMECLIDINIUM BROMIDE\VILANTEROL TRIFENATATE
     Indication: PRODUCT USED FOR UNKNOWN INDICATION
     Dosage: UNK UNK, U
     Dates: start: 20170417

REACTIONS (5)
  - Cough [Unknown]
  - Intestinal polyp [Unknown]
  - Procedural complication [Unknown]
  - Colonoscopy [Unknown]
  - Polypectomy [Unknown]

NARRATIVE: CASE EVENT DATE: 20170714
